FAERS Safety Report 14624043 (Version 2)
Quarter: 2019Q1

REPORT INFORMATION
  Report Type: Spontaneous
  Country: DE (occurrence: DE)
  Receive Date: 20180312
  Receipt Date: 20190314
  Transmission Date: 20190417
  Serious: Yes (Other)
  Sender: FDA-Public Use
  Company Number: DE-ROCHE-2086183

PATIENT
  Age: 25 Year
  Sex: Male

DRUGS (2)
  1. RITUXIMAB. [Suspect]
     Active Substance: RITUXIMAB
     Indication: ROSAI-DORFMAN SYNDROME
     Route: 042
  2. IMATINIB. [Suspect]
     Active Substance: IMATINIB MESYLATE
     Indication: ROSAI-DORFMAN SYNDROME
     Route: 065

REACTIONS (2)
  - Disease progression [Recovered/Resolved]
  - Lymphadenopathy [Recovering/Resolving]
